FAERS Safety Report 5277163-1 (Version None)
Quarter: 2007Q1

REPORT INFORMATION
  Report Type: 
  Country: None (occurrence: None)
  Receive Date: 20061213
  Receipt Date: 20041018
  Transmission Date: 20070707
  Serious: Yes (Hospitalization)
  Sender: FDA-Public Use
  Company Number: 2004UW21646

PATIENT
  Age: 71 Year
  Sex: Female

DRUGS (2)
  1. SEROQUEL [Suspect]
     Indication: SCHIZOPHRENIA
     Dosage: 50 MG PO
     Route: 048
  2. RISPERDAL [Concomitant]

REACTIONS (2)
  - AGITATION [None]
  - EXTRAPYRAMIDAL DISORDER [None]
